FAERS Safety Report 7789243-7 (Version None)
Quarter: 2011Q3

REPORT INFORMATION
  Report Type: 
  Country: None (occurrence: None)
  Receive Date: 20110930
  Receipt Date: 20110920
  Transmission Date: 20111222
  Serious: No
  Sender: FDA-Public Use
  Company Number: US-B.I. PHARMACEUTICALS,INC./RIDGEFIELD-2011-BP-22514BP

PATIENT
  Age: 73 Year
  Sex: Male

DRUGS (3)
  1. PROSCAR [Concomitant]
  2. FLOMAX [Suspect]
     Indication: BENIGN PROSTATIC HYPERPLASIA
     Dosage: 0.4 MG
     Route: 048
     Dates: start: 20030401
  3. ARTHROTEC [Concomitant]

REACTIONS (1)
  - TREMOR [None]
